FAERS Safety Report 20638204 (Version 1)
Quarter: 2022Q1

REPORT INFORMATION
  Report Type: Report from Study
  Country: IN (occurrence: IN)
  Receive Date: 20220325
  Receipt Date: 20220325
  Transmission Date: 20220423
  Serious: Yes (Other)
  Sender: FDA-Public Use
  Company Number: IN-NOVARTISPH-PHHY2019IN139130

PATIENT
  Age: 32 Year
  Sex: Male

DRUGS (52)
  1. SIMULECT [Suspect]
     Active Substance: BASILIXIMAB
     Indication: Renal transplant
     Dosage: 20 MG, UNK (DAY 1 OF OPERATIVE)
     Route: 042
     Dates: start: 20190521
  2. SIMULECT [Suspect]
     Active Substance: BASILIXIMAB
     Dosage: 20 MG, UNK (DAY 4 OF OPERATIVE)
     Route: 042
     Dates: start: 20190525
  3. CILNIDIPINE [Concomitant]
     Active Substance: CILNIDIPINE
     Indication: Product used for unknown indication
     Dosage: 10 MG, BID
     Route: 065
  4. ARKAMIN [Concomitant]
     Indication: Product used for unknown indication
     Dosage: 2.5 MG, TID
     Route: 065
  5. LEUCOVORIN CALCIUM [Concomitant]
     Active Substance: LEUCOVORIN CALCIUM
     Indication: Product used for unknown indication
     Dosage: UNK
     Route: 065
  6. VITAMIN D3 [Concomitant]
     Active Substance: CHOLECALCIFEROL
     Indication: Product used for unknown indication
     Dosage: UNK
     Route: 065
  7. OFRAMAX FORTE [Concomitant]
     Indication: Product used for unknown indication
     Dosage: 1.5 G, BID
     Route: 042
  8. LEVOFLOXACIN [Concomitant]
     Active Substance: LEVOFLOXACIN
     Indication: Product used for unknown indication
     Dosage: 100 ML, QD
     Route: 042
  9. TRAMADOL [Concomitant]
     Active Substance: TRAMADOL
     Indication: Product used for unknown indication
     Dosage: 100 MG, TID
     Route: 042
  10. ONDANSETRON HYDROCHLORIDE [Concomitant]
     Active Substance: ONDANSETRON HYDROCHLORIDE
     Indication: Product used for unknown indication
     Dosage: 4 MG, TID
     Route: 042
  11. FEVASTIN [Concomitant]
     Indication: Product used for unknown indication
     Dosage: 900 MG, TID
     Route: 042
  12. METOCLOPRAMIDE HYDROCHLORIDE [Concomitant]
     Active Substance: METOCLOPRAMIDE HYDROCHLORIDE
     Indication: Product used for unknown indication
     Dosage: 10 MG, BID
     Route: 042
  13. CALCIUM GLUCONATE [Concomitant]
     Active Substance: CALCIUM GLUCONATE
     Indication: Product used for unknown indication
     Dosage: 10 ML, BID (10%) (6AM-6PM)
     Route: 042
  14. PAN [Concomitant]
     Indication: Product used for unknown indication
     Dosage: 40 MG, QD
     Route: 042
  15. TACROLIMUS [Concomitant]
     Active Substance: TACROLIMUS
     Indication: Product used for unknown indication
     Dosage: 2 MG, BID (7AM - 7PM)
     Route: 065
  16. MYCOPHENOLATE MOFETIL [Concomitant]
     Active Substance: MYCOPHENOLATE MOFETIL
     Indication: Product used for unknown indication
     Dosage: UNK
     Route: 065
  17. SOLU-MEDROL [Concomitant]
     Active Substance: METHYLPREDNISOLONE SODIUM SUCCINATE
     Indication: Product used for unknown indication
     Dosage: 250 MG, QD (9 AM) FOR 2 DAYS, STARTED FROM POST OP DAY 1
     Route: 065
     Dates: start: 20190522
  18. SOLU-MEDROL [Concomitant]
     Active Substance: METHYLPREDNISOLONE SODIUM SUCCINATE
     Dosage: 250 MG (125 MG/ 2ML), AMPOULE INJECTION (NOW)
     Route: 042
  19. ENEMA (SODIUM PHOSPHATE, DIBASIC\SODIUM PHOSPHATE, MONOBASIC) [Concomitant]
     Active Substance: SODIUM PHOSPHATE, DIBASIC\SODIUM PHOSPHATE, MONOBASIC
     Indication: Product used for unknown indication
     Dosage: UNK (POST OP DAY2) (PROCTOLYSES BTL), 1 BTL RTL NOW
     Route: 065
     Dates: start: 20190523
  20. AMLODIPINE [Concomitant]
     Active Substance: AMLODIPINE BESYLATE
     Indication: Product used for unknown indication
     Dosage: 5 MG (AS DIRECTED, NOW)
     Route: 048
  21. BASILIXIMAB [Concomitant]
     Active Substance: BASILIXIMAB
     Indication: Product used for unknown indication
     Dosage: 20 MG(AS DIRECTED), 20 MG/ 1 VIAL, NOW
     Route: 042
  22. METOLAR AM [Concomitant]
     Indication: Product used for unknown indication
     Dosage: 1 DOSAGE FORM (50MG), (1 TABLET, HAM) NOW
     Route: 048
  23. METOLAR AM [Concomitant]
     Dosage: 1 DOSAGE FORM (50MG), BID, (1 TABLET, HAM, 08 AND 20 HRS)
     Route: 048
  24. METOLAR AM [Concomitant]
     Dosage: UNK UNK, BID (50/5) 9AM - 9PM
     Route: 065
  25. PAN [Concomitant]
     Indication: Product used for unknown indication
     Dosage: 40 MG (1 X 15) TAB EC, Q24H (14 HRS)
     Route: 048
  26. FOLVITE [Concomitant]
     Active Substance: FOLIC ACID
     Indication: Product used for unknown indication
     Dosage: 1 DOSAGE FORM (5 MG), QD (1 X 45), 1 TABLET, 10 HRS
     Route: 048
  27. FOLVITE [Concomitant]
     Active Substance: FOLIC ACID
     Dosage: UNK UNK, QD (10 AM)
     Route: 065
  28. FERIUM-XT [Concomitant]
     Indication: Product used for unknown indication
     Dosage: 1 DOSAGE FORM, QD (1 TABLET) 10 HRS
     Route: 048
  29. FERIUM-XT [Concomitant]
     Dosage: UNK UNK, BID (9AM - 9 PM)
     Route: 065
  30. PREDNISOLONE [Concomitant]
     Active Substance: PREDNISOLONE
     Indication: Product used for unknown indication
     Dosage: 25 MG, UH (AS DIRECTED), Q24H (14 HRS)
     Route: 048
  31. CALCIUM CARBONATE\CHOLECALCIFEROL [Concomitant]
     Active Substance: CALCIUM CARBONATE\CHOLECALCIFEROL
     Indication: Product used for unknown indication
     Dosage: 500 MG, BID (10 AND 22 HRS)
     Route: 048
  32. CALCIUM CARBONATE\CHOLECALCIFEROL [Concomitant]
     Active Substance: CALCIUM CARBONATE\CHOLECALCIFEROL
     Dosage: 500 MG, QD (1 PM)
     Route: 065
  33. SODIUM CHLORIDE [Concomitant]
     Active Substance: SODIUM CHLORIDE
     Indication: Product used for unknown indication
     Dosage: 500 ML , UD (AS DIRECTED) (PLASTIC BOTTLE) 3 BTL (NOW)
     Route: 042
  34. DEPIN [Concomitant]
     Indication: Product used for unknown indication
     Dosage: 1 DOSAGE FORM (10 MG) NOW
     Route: 048
  35. CLONIDINE [Concomitant]
     Active Substance: CLONIDINE
     Indication: Product used for unknown indication
     Dosage: 0.2 MG (UD, AS DIRECTED), NOW
     Route: 048
  36. SODIUM CHLORIDE [Concomitant]
     Active Substance: SODIUM CHLORIDE
     Indication: Product used for unknown indication
     Dosage: UNK (EUROLIFE INJECTIONS) 6 BOTTLES, NOW
     Route: 042
  37. ACETAMINOPHEN [Concomitant]
     Active Substance: ACETAMINOPHEN
     Indication: Product used for unknown indication
     Dosage: 900 MG (2 ML, UD, AS DIRECTED AMPOULE, 150MG/ML), NOW
     Route: 030
  38. PANTOPRAZOLE [Concomitant]
     Active Substance: PANTOPRAZOLE
     Indication: Product used for unknown indication
     Dosage: 40 MG, Q24H (14 HRS)
     Route: 042
  39. MYCOPHENOLATE SODIUM [Concomitant]
     Active Substance: MYCOPHENOLATE SODIUM
     Indication: Product used for unknown indication
     Dosage: 720 MG, BID (UD, AS DIRECTED) (08 AND 20 HRS)
     Route: 048
  40. MYCOPHENOLATE SODIUM [Concomitant]
     Active Substance: MYCOPHENOLATE SODIUM
     Dosage: 720 MG, BID (9 AM - 9 PM)
     Route: 065
  41. ALPRAZOLAM [Concomitant]
     Active Substance: ALPRAZOLAM
     Indication: Product used for unknown indication
     Dosage: 2 DOSAGE FORM (2 TAB, UD, AS DIRECTED NOW)
     Route: 048
  42. METOCLOPRAMIDE [Concomitant]
     Active Substance: METOCLOPRAMIDE
     Indication: Product used for unknown indication
     Dosage: 2 DOSAGE FORM (UD, AS DIRECTED, 2 TABS, NOW)
     Route: 048
  43. RANITIDINE [Concomitant]
     Active Substance: RANITIDINE
     Indication: Product used for unknown indication
     Dosage: 2 DOSAGE FORM (UD, AS DIRECTED, 2 TABS, NOW)
     Route: 048
  44. TACROLIMUS [Concomitant]
     Active Substance: TACROLIMUS
     Indication: Product used for unknown indication
     Dosage: 3 MG, BID (08 AND 20 HRS)
     Route: 048
  45. TACROLIMUS [Concomitant]
     Active Substance: TACROLIMUS
     Indication: Product used for unknown indication
     Dosage: UNK
     Route: 065
  46. DROTAVERINE [Concomitant]
     Active Substance: DROTAVERINE
     Indication: Product used for unknown indication
     Dosage: UNK (40/2 MG/ML), 2 ML AMPOULE, STAT, ONCE/SINGLE
     Route: 042
  47. PREDNISOLONE [Concomitant]
     Active Substance: PREDNISOLONE
     Indication: Product used for unknown indication
     Dosage: 20 MG, QD (10 AM, AFTER MEAL)
     Route: 065
  48. RANITIDINE HYDROCHLORIDE [Concomitant]
     Active Substance: RANITIDINE HYDROCHLORIDE
     Indication: Product used for unknown indication
     Dosage: 150 MG, QD (7 AM, BEFORE MEAL)
     Route: 065
  49. SEPTRAN [Concomitant]
     Indication: Product used for unknown indication
     Dosage: UNK, QOD (SEPTRAN DS), ALTERNATE DAY)
     Route: 065
  50. MYCOPHENOLATE MOFETIL [Concomitant]
     Active Substance: MYCOPHENOLATE MOFETIL
     Indication: Product used for unknown indication
     Dosage: UNK
     Route: 065
  51. TACROLIMUS [Concomitant]
     Active Substance: TACROLIMUS
     Indication: Product used for unknown indication
     Dosage: 3 MG, BID
     Route: 065
  52. TACROLIMUS [Concomitant]
     Active Substance: TACROLIMUS
     Dosage: 2 MG, BID
     Route: 065

REACTIONS (5)
  - Kidney transplant rejection [Recovered/Resolved]
  - Renal tubular necrosis [Unknown]
  - Lymphocytic infiltration [Unknown]
  - Eosinophilia [Unknown]
  - Blood creatinine increased [Unknown]

NARRATIVE: CASE EVENT DATE: 20190530
